FAERS Safety Report 5701657-5 (Version None)
Quarter: 2008Q2

REPORT INFORMATION
  Report Type: 
  Country: None (occurrence: None)
  Receive Date: 20080409
  Receipt Date: 20080409
  Transmission Date: 20081010
  Serious: Yes (Other)
  Sender: FDA-Public Use
  Company Number: None

PATIENT
  Age: 55 Year
  Sex: Male
  Weight: 121.1104 kg

DRUGS (1)
  1. PROVIGIL [Suspect]
     Dosage: 100 MG 1 PO; 7-9 DAYS
     Route: 048

REACTIONS (6)
  - BLOOD PRESSURE SYSTOLIC DECREASED [None]
  - DELUSION [None]
  - DIZZINESS [None]
  - DROP ATTACKS [None]
  - SOMNOLENCE [None]
  - VISUAL DISTURBANCE [None]
